FAERS Safety Report 6236952-7 (Version None)
Quarter: 2009Q2

REPORT INFORMATION
  Report Type: 
  Country: None (occurrence: None)
  Receive Date: 20090619
  Receipt Date: 20090224
  Transmission Date: 20091009
  Serious: No
  Sender: FDA-Public Use
  Company Number: US-ASTRAZENECA-2009UW05239

PATIENT
  Sex: Male

DRUGS (3)
  1. SYMBICORT [Suspect]
     Indication: ASTHMA
     Dosage: 160/4.5 MCG TWO PUFFS  TWICE A DAY
     Route: 055
  2. TENORMIN [Concomitant]
     Indication: HEART RATE INCREASED
     Route: 048
  3. PREDNISONE [Concomitant]
     Indication: ASTHMA
     Route: 048

REACTIONS (3)
  - ASTHENIA [None]
  - HEART RATE INCREASED [None]
  - HEART RATE IRREGULAR [None]
